FAERS Safety Report 10099599 (Version 1)
Quarter: 2014Q2

REPORT INFORMATION
  Report Type: Spontaneous
  Country: US (occurrence: None)
  Receive Date: 20140422
  Receipt Date: 20140422
  Transmission Date: 20141212
  Serious: Yes (Disabling)
  Sender: FDA-Public Use
  Company Number: None

PATIENT
  Age: 52 Year
  Sex: Female
  Weight: 136.08 kg

DRUGS (4)
  1. DICLOFENAC SOD [Suspect]
     Indication: INFLAMMATION
     Route: 048
     Dates: start: 20140126, end: 20140128
  2. ADVAIR [Concomitant]
  3. PREVACID [Concomitant]
  4. TYLENOL [Concomitant]

REACTIONS (3)
  - Abdominal pain upper [None]
  - Dizziness [None]
  - Flatulence [None]
